FAERS Safety Report 4359908-8 (Version None)
Quarter: 2004Q2

REPORT INFORMATION
  Report Type: 
  Country: None (occurrence: None)
  Receive Date: 20040518
  Receipt Date: 20040506
  Transmission Date: 20050107
  Serious: Yes (Hospitalization)
  Sender: FDA-Public Use
  Company Number: PHBS2004HK06194

PATIENT
  Age: 25 Year
  Sex: Female

DRUGS (4)
  1. DICLOFENAC SODIUM [Suspect]
     Indication: INFLUENZA LIKE ILLNESS
     Dosage: 25 MG, TID
  2. CEPHALEXIN MONOHYDRATE [Suspect]
  3. CHLORPHENIRAMINE MALEATE [Suspect]
  4. PHENSEDYL [Suspect]

REACTIONS (3)
  - CAESAREAN SECTION [None]
  - COMPLICATIONS OF MATERNAL EXPOSURE TO THERAPEUTIC DRUGS [None]
  - DRUG EXPOSURE DURING PREGNANCY [None]
